FAERS Safety Report 24997767 (Version 1)
Quarter: 2025Q1

REPORT INFORMATION
  Report Type: Spontaneous
  Country: AU (occurrence: AU)
  Receive Date: 20250222
  Receipt Date: 20250222
  Transmission Date: 20250409
  Serious: Yes (Life-Threatening, Hospitalization, Other)
  Sender: ABBVIE
  Company Number: AU-ABBVIE-6146065

PATIENT
  Age: 8 Year
  Sex: Male

DRUGS (2)
  1. DEXAMETHASONE [Suspect]
     Active Substance: DEXAMETHASONE
     Indication: Product used for unknown indication
     Route: 065
  2. LEUCOVORIN [Suspect]
     Active Substance: LEUCOVORIN\LEUCOVORIN CALCIUM
     Indication: Product used for unknown indication
     Route: 065

REACTIONS (10)
  - Venous occlusion [Unknown]
  - Neutropenia [Unknown]
  - Mucormycosis [Unknown]
  - Disseminated mucormycosis [Unknown]
  - Abdominal sepsis [Unknown]
  - Enterococcal infection [Unknown]
  - Mycobacterial infection [Unknown]
  - Myelosuppression [Unknown]
  - Gastrointestinal infection [Unknown]
  - Leukaemia recurrent [Unknown]
